FAERS Safety Report 16714539 (Version 1)
Quarter: 2019Q3

REPORT INFORMATION
  Report Type: Spontaneous
  Country: IT (occurrence: IT)
  Receive Date: 20190819
  Receipt Date: 20190819
  Transmission Date: 20191004
  Serious: Yes (Other)
  Sender: FDA-Public Use
  Company Number: PHHY2019IT186043

PATIENT
  Age: 36 Year

DRUGS (1)
  1. BETAMETHASONE. [Suspect]
     Active Substance: BETAMETHASONE
     Indication: OEDEMA PERIPHERAL
     Dosage: UNK
     Route: 030

REACTIONS (11)
  - Oedema peripheral [Unknown]
  - Pericarditis [Unknown]
  - Hepatomegaly [Unknown]
  - Lymphadenopathy [Unknown]
  - Atelectasis [Unknown]
  - Psychomotor skills impaired [Unknown]
  - Pericardial effusion [Unknown]
  - Kaposi^s sarcoma [Unknown]
  - Pleural effusion [Unknown]
  - Lung infection [Unknown]
  - Product use in unapproved indication [Unknown]
